FAERS Safety Report 7645472-4 (Version None)
Quarter: 2011Q3

REPORT INFORMATION
  Report Type: 
  Country: None (occurrence: None)
  Receive Date: 20110729
  Receipt Date: 20110718
  Transmission Date: 20111222
  Serious: Yes (Death)
  Sender: FDA-Public Use
  Company Number: US-ELI_LILLY_AND_COMPANY-US201106001198

PATIENT
  Sex: Male

DRUGS (1)
  1. ZYPREXA [Suspect]
     Dosage: 15 MG, EACH MORNING
     Route: 048
     Dates: start: 20101104, end: 20110512

REACTIONS (2)
  - DEATH [None]
  - REHABILITATION THERAPY [None]
